FAERS Safety Report 7389194-6 (Version None)
Quarter: 2011Q2

REPORT INFORMATION
  Report Type: 
  Country: None (occurrence: None)
  Receive Date: 20110401
  Receipt Date: 20110322
  Transmission Date: 20111010
  Serious: Yes (Hospitalization, Other)
  Sender: FDA-Public Use
  Company Number: US-SANOFI-AVENTIS-2011SA012289

PATIENT
  Age: 79 Year
  Sex: Male
  Weight: 116.36 kg

DRUGS (11)
  1. LOPRESSOR [Concomitant]
  2. LASIX [Concomitant]
  3. ASPIRIN [Concomitant]
     Indication: CORONARY ARTERY DISEASE
  4. IMDUR [Concomitant]
     Indication: CORONARY ARTERY DISEASE
  5. LISINOPRIL [Concomitant]
     Indication: HYPERTENSION
  6. LANTUS [Concomitant]
     Dosage: DOSE:20 UNIT(S)
  7. MULTAQ [Suspect]
     Indication: ATRIAL FIBRILLATION
     Route: 048
     Dates: start: 20100830, end: 20110217
  8. TAGAMET [Concomitant]
  9. LISINOPRIL [Concomitant]
     Indication: CORONARY ARTERY DISEASE
  10. MULTI-VITAMINS [Concomitant]
  11. ZOCOR [Concomitant]

REACTIONS (3)
  - VENTRICULAR FIBRILLATION [None]
  - TORSADE DE POINTES [None]
  - ELECTROCARDIOGRAM QT PROLONGED [None]
